FAERS Safety Report 15988831 (Version 2)
Quarter: 2019Q1

REPORT INFORMATION
  Report Type: Spontaneous
  Country: US (occurrence: US)
  Receive Date: 20190221
  Receipt Date: 20190322
  Transmission Date: 20190418
  Serious: No
  Sender: FDA-Public Use
  Company Number: US-ASTRAZENECA-2019SE15576

PATIENT
  Age: 857 Month
  Sex: Female
  Weight: 54.4 kg

DRUGS (2)
  1. SYMBICORT [Suspect]
     Active Substance: BUDESONIDE\FORMOTEROL FUMARATE DIHYDRATE
     Indication: CHRONIC OBSTRUCTIVE PULMONARY DISEASE
     Dosage: 160/4.5 MCG, 2 PUFFS IN THE MORNING AND SKIPS HER EVENING PUFFS
     Route: 055
     Dates: start: 201805
  2. SYMBICORT [Suspect]
     Active Substance: BUDESONIDE\FORMOTEROL FUMARATE DIHYDRATE
     Indication: CHRONIC OBSTRUCTIVE PULMONARY DISEASE
     Dosage: 160/4.5 MCG, 2 PUFFS IN THE MORNING AND 2 PUFFS IN THE EVENING
     Route: 055
     Dates: start: 201804

REACTIONS (8)
  - Body height decreased [Not Recovered/Not Resolved]
  - Device issue [Unknown]
  - Intentional product misuse [Not Recovered/Not Resolved]
  - Weight decreased [Not Recovered/Not Resolved]
  - Wrong technique in product usage process [Unknown]
  - Device failure [Unknown]
  - Product dose omission [Not Recovered/Not Resolved]
  - Insurance issue [Unknown]

NARRATIVE: CASE EVENT DATE: 201804
